FAERS Safety Report 22166104 (Version 1)
Quarter: 2023Q2

REPORT INFORMATION
  Report Type: Spontaneous
  Country: IL (occurrence: IL)
  Receive Date: 20230403
  Receipt Date: 20230403
  Transmission Date: 20230722
  Serious: Yes (Other)
  Sender: FDA-Public Use
  Company Number: IL-PFIZER INC-PV202300056910

PATIENT
  Age: 30 Year
  Sex: Male

DRUGS (1)
  1. FELDENE [Suspect]
     Active Substance: PIROXICAM
     Dosage: TWICE
     Dates: start: 20230323

REACTIONS (2)
  - Application site rash [Unknown]
  - Application site erythema [Unknown]
